FAERS Safety Report 13633144 (Version 1)
Quarter: 2017Q2

REPORT INFORMATION
  Report Type: Report from Study
  Country: None (occurrence: US)
  Receive Date: 20170609
  Receipt Date: 20170609
  Transmission Date: 20170830
  Serious: Yes (Hospitalization, Other)
  Sender: FDA-Public Use
  Company Number: US-ABBVIE-17K-163-2002147-00

PATIENT
  Age: 67 Year
  Sex: Male
  Weight: 77.18 kg

DRUGS (6)
  1. VITAMIN D3 [Concomitant]
     Active Substance: CHOLECALCIFEROL
     Indication: VITAMIN SUPPLEMENTATION
  2. VITAMIN B [Concomitant]
     Active Substance: VITAMIN B
     Indication: VITAMIN SUPPLEMENTATION
  3. HUMIRA [Suspect]
     Active Substance: ADALIMUMAB
     Route: 058
     Dates: start: 2015
  4. CLINDAMYCIN. [Suspect]
     Active Substance: CLINDAMYCIN
     Indication: PROPHYLAXIS
     Route: 065
     Dates: start: 201705
  5. HUMIRA [Suspect]
     Active Substance: ADALIMUMAB
     Indication: RHEUMATOID ARTHRITIS
     Route: 058
     Dates: start: 2015, end: 2015
  6. CIALIS [Concomitant]
     Active Substance: TADALAFIL
     Indication: BENIGN PROSTATIC HYPERPLASIA

REACTIONS (11)
  - Nerve injury [Not Recovered/Not Resolved]
  - Infrequent bowel movements [Unknown]
  - Nausea [Not Recovered/Not Resolved]
  - Tooth fracture [Recovered/Resolved]
  - Constipation [Recovering/Resolving]
  - Spinal fracture [Recovered/Resolved with Sequelae]
  - Urticaria [Recovered/Resolved]
  - Eye injury [Recovered/Resolved]
  - Road traffic accident [Recovered/Resolved]
  - Nocturia [Recovered/Resolved]
  - Spinal column stenosis [Not Recovered/Not Resolved]

NARRATIVE: CASE EVENT DATE: 201603
